FAERS Safety Report 7495715-5 (Version None)
Quarter: 2011Q2

REPORT INFORMATION
  Report Type: 
  Country: None (occurrence: None)
  Receive Date: 20110523
  Receipt Date: 20110513
  Transmission Date: 20111010
  Serious: Yes (Other)
  Sender: FDA-Public Use
  Company Number: US-US-EMD SERONO, INC.-7059710

PATIENT
  Sex: Female

DRUGS (1)
  1. REBIF [Suspect]
     Indication: PRODUCT USED FOR UNKNOWN INDICATION
     Route: 058
     Dates: start: 20101008

REACTIONS (5)
  - UTERINE ENLARGEMENT [None]
  - BACK PAIN [None]
  - UTERINE LEIOMYOMA [None]
  - UTERINE DISORDER [None]
  - INJECTION SITE PAIN [None]
